FAERS Safety Report 10180039 (Version 1)
Quarter: 2014Q2

REPORT INFORMATION
  Report Type: Spontaneous
  Country: US (occurrence: US)
  Receive Date: 20140519
  Receipt Date: 20140519
  Transmission Date: 20141212
  Serious: No
  Sender: FDA-Public Use
  Company Number: US-AMGEN INC.-USASP2013074128

PATIENT
  Age: 62 Year
  Sex: Female

DRUGS (4)
  1. PROLIA [Suspect]
     Indication: OSTEOPOROSIS POSTMENOPAUSAL
     Dosage: UNK UNK, Q6MO
     Route: 065
     Dates: start: 20131017
  2. VITAMIN D3 [Concomitant]
     Dosage: 3000 IU, UNK
  3. VITAMIN C                          /00008001/ [Concomitant]
  4. DIURETICS [Concomitant]
     Dosage: UNK UNK, AS NECESSARY

REACTIONS (2)
  - Limb discomfort [Unknown]
  - Discomfort [Unknown]
